FAERS Safety Report 7065179-4 (Version None)
Quarter: 2010Q4

REPORT INFORMATION
  Report Type: 
  Country: None (occurrence: None)
  Receive Date: 20101027
  Receipt Date: 19940314
  Transmission Date: 20110411
  Serious: Yes (Death)
  Sender: FDA-Public Use
  Company Number: DE-ROCHE-940320274001

PATIENT
  Sex: Female
  Weight: 58 kg

DRUGS (6)
  1. MOCLOBEMIDE [Suspect]
     Route: 048
     Dates: start: 19940106
  2. ATOSIL [Concomitant]
     Indication: ANXIETY
     Route: 048
     Dates: start: 19931114
  3. LASIX [Concomitant]
     Route: 065
  4. PRES [Concomitant]
     Route: 048
  5. GODAMED [Concomitant]
     Route: 048
  6. EUTHYROX [Concomitant]
     Route: 048

REACTIONS (2)
  - DEATH [None]
  - PARANOIA [None]
